FAERS Safety Report 9523073 (Version 1)
Quarter: 2013Q3

REPORT INFORMATION
  Report Type: Spontaneous
  Country: GB (occurrence: GB)
  Receive Date: 20130913
  Receipt Date: 20130913
  Transmission Date: 20140515
  Serious: Yes (Other)
  Sender: FDA-Public Use
  Company Number: GB-GILEAD-2013-0083295

PATIENT
  Sex: Male

DRUGS (2)
  1. VIREAD [Suspect]
     Indication: PRODUCT USED FOR UNKNOWN INDICATION
     Dosage: 245 MG, Q1WK
     Dates: start: 20130907, end: 20130909
  2. VIREAD [Suspect]
     Dosage: 245 MG, Q1WK

REACTIONS (2)
  - Sepsis [Unknown]
  - Inappropriate schedule of drug administration [Unknown]
